FAERS Safety Report 13625781 (Version 1)
Quarter: 2017Q2

REPORT INFORMATION
  Report Type: Spontaneous
  Country: CH (occurrence: CH)
  Receive Date: 20170608
  Receipt Date: 20170608
  Transmission Date: 20170830
  Serious: Yes (Hospitalization)
  Sender: FDA-Public Use
  Company Number: CH-009507513-1705CHE015707

PATIENT
  Age: 48 Year
  Sex: Male

DRUGS (6)
  1. ESOMEPRAZOLE [Concomitant]
     Active Substance: ESOMEPRAZOLE
     Route: 040
  2. INVANZ [Suspect]
     Active Substance: ERTAPENEM SODIUM
     Indication: WOUND INFECTION BACTERIAL
     Route: 041
     Dates: start: 201702, end: 20170321
  3. VANCOCIN [Concomitant]
     Active Substance: VANCOMYCIN HYDROCHLORIDE
     Dates: start: 20170204, end: 20170321
  4. CODEIN KNOLL [Concomitant]
     Active Substance: CODEINE PHOSPHATE
     Route: 048
     Dates: start: 2017, end: 2017
  5. FRAGMIN [Concomitant]
     Active Substance: DALTEPARIN SODIUM
     Dosage: 10000 IU, QD
  6. DIFLUCAN [Suspect]
     Active Substance: FLUCONAZOLE
     Indication: WOUND INFECTION
     Route: 042
     Dates: start: 20170113, end: 20170320

REACTIONS (5)
  - Myoclonus [Recovered/Resolved]
  - Ataxia [Recovered/Resolved]
  - Delirium [Recovered/Resolved]
  - Tremor [Recovered/Resolved]
  - Hallucination [Recovered/Resolved]

NARRATIVE: CASE EVENT DATE: 20170322
